FAERS Safety Report 8537619-2 (Version None)
Quarter: 2012Q3

REPORT INFORMATION
  Report Type: 
  Country: None (occurrence: None)
  Receive Date: 20120725
  Receipt Date: 20120723
  Transmission Date: 20120928
  Serious: No
  Sender: FDA-Public Use
  Company Number: US-TEVA-349872USA

PATIENT
  Sex: Female
  Weight: 70.37 kg

DRUGS (6)
  1. TEGRETOL [Concomitant]
  2. RITALIN [Concomitant]
  3. PROAIR HFA [Suspect]
     Indication: ASTHMA
     Route: 055
     Dates: start: 20120706
  4. EFFEXOR [Concomitant]
  5. RISPERDAL [Concomitant]
  6. LISINOPRIL [Concomitant]

REACTIONS (1)
  - DYSPHONIA [None]
